FAERS Safety Report 23042775 (Version 1)
Quarter: 2023Q4

REPORT INFORMATION
  Report Type: Spontaneous
  Country: US (occurrence: US)
  Receive Date: 20231009
  Receipt Date: 20231009
  Transmission Date: 20240110
  Serious: Yes (Life-Threatening, Hospitalization, Other)
  Sender: FDA-Public Use
  Company Number: US-SANDOZ-SDZ2023US038686

PATIENT
  Age: 71 Year
  Sex: Male

DRUGS (5)
  1. METHADONE [Suspect]
     Active Substance: METHADONE HYDROCHLORIDE
     Indication: Product used for unknown indication
     Route: 065
  2. SENNOSIDES [Concomitant]
     Active Substance: SENNOSIDES
     Indication: Abdominal discomfort
     Dosage: 8.6 MG
     Route: 065
  3. SENNOSIDES [Concomitant]
     Active Substance: SENNOSIDES
     Indication: Constipation
  4. DILTIAZEM [Interacting]
     Active Substance: DILTIAZEM
     Dosage: UNK
     Route: 065
  5. DILTIAZEM [Interacting]
     Active Substance: DILTIAZEM
     Indication: Atrial fibrillation
     Route: 042

REACTIONS (2)
  - Drug interaction [Unknown]
  - Ileus paralytic [Unknown]
